FAERS Safety Report 9021910 (Version 1)
Quarter: 2013Q1

REPORT INFORMATION
  Report Type: Spontaneous
  Country: GB (occurrence: GB)
  Receive Date: 20130118
  Receipt Date: 20130118
  Transmission Date: 20140127
  Serious: Yes (Other)
  Sender: FDA-Public Use
  Company Number: GB-009507513-1212GBR006225

PATIENT
  Sex: Female

DRUGS (2)
  1. IVEMEND [Suspect]
     Indication: NAUSEA
     Route: 042
  2. IVEMEND [Suspect]
     Indication: VOMITING

REACTIONS (1)
  - Extravasation [Recovering/Resolving]
